FAERS Safety Report 5169160-1 (Version None)
Quarter: 2006Q4

REPORT INFORMATION
  Report Type: 
  Country: None (occurrence: None)
  Receive Date: 20061201
  Receipt Date: 20061114
  Transmission Date: 20070319
  Serious: Yes (Death)
  Sender: FDA-Public Use
  Company Number: US-2006-030211

PATIENT
  Sex: Male

DRUGS (2)
  1. BETASERON [Suspect]
     Indication: MULTIPLE SCLEROSIS
     Dosage: SUBCUTANEOUS
     Route: 058
     Dates: start: 20020119
  2. ANTINEOPLASTIC AGENTS [Concomitant]

REACTIONS (3)
  - CORONARY ARTERY DISEASE [None]
  - LUNG CANCER METASTATIC [None]
  - SUDDEN CARDIAC DEATH [None]
